FAERS Safety Report 7099545 (Version 2)
Quarter: 2014Q1

REPORT INFORMATION
  Report Type: Spontaneous
  Country: TW (occurrence: None)
  Receive Date: 20090812
  Receipt Date: 20140207
  Transmission Date: 20141002
  Serious: Yes (Death, Other)
  Sender: FDA-Public Use
  Company Number: THYM-1001131

PATIENT
  Age: 2 Year
  Sex: Male

DRUGS (5)
  1. THYMOGLOBULIN [Suspect]
     Indication: ALLOGENIC BONE MARROW TRANSPLANTATION THERAPY
     Dosage: INTRAVENOUS
     Route: 042
  2. CICLOSPORIN [Concomitant]
  3. CORTICOSTEROID [Concomitant]
  4. BUSULFAN [Concomitant]
  5. CYCLOPHOSPHAMIDE [Concomitant]

REACTIONS (2)
  - Post transplant lymphoproliferative disorder [None]
  - Acute graft versus host disease [None]
